FAERS Safety Report 14517115 (Version 1)
Quarter: 2018Q1

REPORT INFORMATION
  Report Type: Report from Study
  Country: US (occurrence: US)
  Receive Date: 20180212
  Receipt Date: 20180212
  Transmission Date: 20180509
  Serious: No
  Sender: FDA-Public Use
  Company Number: US-AMGEN-USASL2018018051

PATIENT
  Age: 47 Year
  Sex: Male

DRUGS (2)
  1. ENBREL [Suspect]
     Active Substance: ETANERCEPT
     Dosage: 50 MG, QWK
     Route: 058
  2. ENBREL [Suspect]
     Active Substance: ETANERCEPT
     Indication: RHEUMATOID ARTHRITIS
     Dosage: 50 MG, QWK
     Route: 058
     Dates: start: 2017, end: 201712

REACTIONS (5)
  - Wrong technique in product usage process [Unknown]
  - Injection site pain [Unknown]
  - Contusion [Recovering/Resolving]
  - Nervousness [Unknown]
  - Influenza [Unknown]

NARRATIVE: CASE EVENT DATE: 201712
